FAERS Safety Report 10745879 (Version 1)
Quarter: 2015Q1

REPORT INFORMATION
  Report Type: Spontaneous
  Country: US (occurrence: None)
  Receive Date: 20150127
  Receipt Date: 20150127
  Transmission Date: 20150721
  Serious: Yes (Other)
  Sender: FDA-Public Use
  Company Number: None

PATIENT
  Age: 37 Year
  Sex: Female

DRUGS (1)
  1. TECFIDERA [Suspect]
     Active Substance: DIMETHYL FUMARATE
     Indication: MULTIPLE SCLEROSIS
     Dosage: 1, BID, ORAL
     Route: 048
     Dates: start: 20150120, end: 20150126

REACTIONS (2)
  - Flushing [None]
  - Pain [None]

NARRATIVE: CASE EVENT DATE: 20150126
